FAERS Safety Report 19047535 (Version 2)
Quarter: 2021Q1

REPORT INFORMATION
  Report Type: Spontaneous
  Country: CN (occurrence: CN)
  Receive Date: 20210323
  Receipt Date: 20210331
  Transmission Date: 20210420
  Serious: Yes (Death, Other)
  Sender: FDA-Public Use
  Company Number: CN-009507513-2103CHN005480

PATIENT
  Age: 82 Year
  Sex: Male

DRUGS (1)
  1. KEYTRUDA [Suspect]
     Active Substance: PEMBROLIZUMAB
     Indication: OESOPHAGEAL CARCINOMA
     Dosage: 200 MG, ONCE
     Dates: start: 20210310

REACTIONS (3)
  - Chest pain [Unknown]
  - Death [Fatal]
  - White blood cell count increased [Unknown]

NARRATIVE: CASE EVENT DATE: 202103
